FAERS Safety Report 19091309 (Version 3)
Quarter: 2021Q2

REPORT INFORMATION
  Report Type: Report from Study
  Country: CA (occurrence: CA)
  Receive Date: 20210405
  Receipt Date: 20210416
  Transmission Date: 20210717
  Serious: Yes (Hospitalization, Other)
  Sender: FDA-Public Use
  Company Number: CA-BIOGEN-2021BI00986675

PATIENT
  Sex: Female

DRUGS (2)
  1. TYSABRI [Suspect]
     Active Substance: NATALIZUMAB
     Route: 042
     Dates: start: 20210201
  2. TYSABRI [Suspect]
     Active Substance: NATALIZUMAB
     Indication: MULTIPLE SCLEROSIS
     Route: 042
     Dates: start: 20210201

REACTIONS (18)
  - Pain [Unknown]
  - Stress [Unknown]
  - Depression [Unknown]
  - Vertigo [Recovered/Resolved]
  - Myalgia [Not Recovered/Not Resolved]
  - Musculoskeletal stiffness [Unknown]
  - Multiple sclerosis [Unknown]
  - Dizziness [Recovered/Resolved]
  - Electric shock sensation [Unknown]
  - Headache [Not Recovered/Not Resolved]
  - Suicidal ideation [Unknown]
  - Nightmare [Unknown]
  - Gait disturbance [Unknown]
  - Fatigue [Unknown]
  - Urinary tract infection [Unknown]
  - Fear [Unknown]
  - Psychiatric symptom [Unknown]
  - Tremor [Unknown]
